FAERS Safety Report 14407030 (Version 1)
Quarter: 2018Q1

REPORT INFORMATION
  Report Type: Spontaneous
  Country: US (occurrence: US)
  Receive Date: 20180116
  Receipt Date: 20180116
  Transmission Date: 20180509
  Serious: No
  Sender: FDA-Public Use
  Company Number: None

PATIENT
  Age: 50 Year
  Sex: Male

DRUGS (16)
  1. ESCITALOPRAM [Concomitant]
     Active Substance: ESCITALOPRAM OXALATE
  2. BACTRIM DS [Concomitant]
     Active Substance: SULFAMETHOXAZOLE\TRIMETHOPRIM
  3. CELLCEPT [Suspect]
     Active Substance: MYCOPHENOLATE MOFETIL\MYCOPHENOLATE MOFETIL HYDROCHLORIDE
     Indication: PROPHYLAXIS AGAINST TRANSPLANT REJECTION
     Route: 048
     Dates: start: 20160907
  4. BENADRYL [Concomitant]
     Active Substance: DIPHENHYDRAMINE HYDROCHLORIDE
  5. MAGNESIUM [Concomitant]
     Active Substance: MAGNESIUM
  6. PANTOPRAZOLE [Concomitant]
     Active Substance: PANTOPRAZOLE
  7. TACROLIMUS. [Concomitant]
     Active Substance: TACROLIMUS
  8. LEVOTHYROXIN [Concomitant]
     Active Substance: LEVOTHYROXINE
  9. CLONAZEPAM. [Concomitant]
     Active Substance: CLONAZEPAM
  10. TORESEMIDE [Concomitant]
     Active Substance: TORSEMIDE
  11. AMLODIPINE [Concomitant]
     Active Substance: AMLODIPINE BESYLATE
  12. FERROUS SULFATE. [Concomitant]
     Active Substance: FERROUS SULFATE
  13. PRAVASTATIN. [Concomitant]
     Active Substance: PRAVASTATIN
  14. GABAPENTIN. [Concomitant]
     Active Substance: GABAPENTIN
  15. BENZONATATE. [Concomitant]
     Active Substance: BENZONATATE
  16. SIROLIMUS. [Concomitant]
     Active Substance: SIROLIMUS

REACTIONS (2)
  - Nasopharyngitis [None]
  - Drug dose omission [None]

NARRATIVE: CASE EVENT DATE: 20180113
